FAERS Safety Report 25399969 (Version 1)
Quarter: 2025Q2

REPORT INFORMATION
  Report Type: Spontaneous
  Country: PL (occurrence: PL)
  Receive Date: 20250605
  Receipt Date: 20250605
  Transmission Date: 20250716
  Serious: Yes (Hospitalization)
  Sender: NOVARTIS
  Company Number: PL-KRKA-PL2025K09541LIT

PATIENT
  Age: 65 Year
  Sex: Female

DRUGS (6)
  1. IMATINIB [Suspect]
     Active Substance: IMATINIB
     Indication: Philadelphia positive acute lymphocytic leukaemia
     Route: 065
  2. IMATINIB [Suspect]
     Active Substance: IMATINIB
     Route: 065
     Dates: start: 202107
  3. DASATINIB [Suspect]
     Active Substance: DASATINIB
     Indication: Philadelphia positive acute lymphocytic leukaemia
     Dosage: 140 MG, QD
     Route: 065
     Dates: start: 202307
  4. DASATINIB [Suspect]
     Active Substance: DASATINIB
     Dosage: 100 MG, QD
     Route: 065
  5. DEXAMETHASONE [Concomitant]
     Active Substance: DEXAMETHASONE
     Indication: Philadelphia positive acute lymphocytic leukaemia
     Route: 065
  6. DEXAMETHASONE [Concomitant]
     Active Substance: DEXAMETHASONE
     Dosage: 40 MG, QD
     Route: 065
     Dates: start: 202307

REACTIONS (3)
  - Drug resistance [Unknown]
  - Gastrointestinal toxicity [Unknown]
  - Toxicity to various agents [Unknown]
